FAERS Safety Report 5759818-5 (Version None)
Quarter: 2008Q2

REPORT INFORMATION
  Report Type: 
  Country: None (occurrence: None)
  Receive Date: 20080605
  Receipt Date: 20080529
  Transmission Date: 20081010
  Serious: Yes (Other)
  Sender: FDA-Public Use
  Company Number: US-ABBOTT-08P-163-0454073-00

PATIENT
  Age: 88 Year
  Sex: Male

DRUGS (3)
  1. NIASPAN [Suspect]
     Indication: DRUG USE FOR UNKNOWN INDICATION
  2. ASPIRIN [Suspect]
     Indication: PROPHYLAXIS
  3. ASPIRIN [Suspect]
     Indication: FLUSHING

REACTIONS (2)
  - LARGE INTESTINAL HAEMORRHAGE [None]
  - SURGERY [None]
